FAERS Safety Report 5804963-9 (Version None)
Quarter: 2008Q3

REPORT INFORMATION
  Report Type: 
  Country: None (occurrence: None)
  Receive Date: 20080709
  Receipt Date: 20080623
  Transmission Date: 20090109
  Serious: Yes (Hospitalization)
  Sender: FDA-Public Use
  Company Number: DE-PFIZER INC-2008048996

PATIENT
  Sex: Female

DRUGS (9)
  1. HYDROXYZINE HYDROCHLORIDE [Suspect]
     Route: 048
  2. CETIRIZINE HCL [Suspect]
     Route: 048
  3. FLURAZEPAM HYDROCHLORIDE [Suspect]
     Route: 048
  4. DIAZEPAM [Suspect]
     Route: 048
  5. EUTHYROX [Suspect]
     Route: 048
  6. NOVALGINA [Suspect]
     Route: 048
  7. TRAMADOL HYDROCHLORIDE [Suspect]
     Route: 048
  8. ZOLPIDEM [Suspect]
     Route: 048
  9. NALOXONE/OXYCODONE [Suspect]

REACTIONS (6)
  - BRADYPNOEA [None]
  - CARDIAC ARREST [None]
  - COMA [None]
  - GASTROINTESTINAL HYPOMOTILITY [None]
  - INTENTIONAL OVERDOSE [None]
  - SUICIDE ATTEMPT [None]
